FAERS Safety Report 19199232 (Version 1)
Quarter: 2021Q2

REPORT INFORMATION
  Report Type: Spontaneous
  Country: US (occurrence: US)
  Receive Date: 20210429
  Receipt Date: 20210429
  Transmission Date: 20210717
  Serious: Yes (Hospitalization)
  Sender: FDA-Public Use
  Company Number: None

PATIENT
  Age: 56 Year
  Sex: Male

DRUGS (2)
  1. MYCOPHENOLIC [Suspect]
     Active Substance: MYCOPHENOLIC ACID
     Indication: CHRONIC KIDNEY DISEASE
     Route: 048
     Dates: start: 20200825
  2. TACROLIMUS. [Suspect]
     Active Substance: TACROLIMUS
     Indication: CHRONIC KIDNEY DISEASE
     Route: 048
     Dates: start: 20200825

REACTIONS (1)
  - COVID-19 [None]

NARRATIVE: CASE EVENT DATE: 20210328
